FAERS Safety Report 4798280-6 (Version None)
Quarter: 2005Q4

REPORT INFORMATION
  Report Type: 
  Country: None (occurrence: None)
  Receive Date: 20051014
  Receipt Date: 20051004
  Transmission Date: 20060501
  Serious: Yes (Other)
  Sender: FDA-Public Use
  Company Number: PHBS2005IN14589

PATIENT
  Age: 20 Year
  Sex: Female

DRUGS (4)
  1. IMIPRAMINE [Suspect]
     Indication: DEPRESSION
     Dosage: 100 MG/D
     Route: 048
  2. IMIPRAMINE [Suspect]
     Dosage: 75 MG/D
     Route: 048
  3. IMIPRAMINE [Suspect]
     Dosage: 125 MG/D
     Route: 048
  4. SERTRALINE HCL [Concomitant]
     Dosage: 150 MG/D
     Route: 065

REACTIONS (5)
  - DEPRESSIVE SYMPTOM [None]
  - SKIN ATROPHY [None]
  - SKIN DISCOLOURATION [None]
  - SKIN FIBROSIS [None]
  - SKIN HYPERPIGMENTATION [None]
